FAERS Safety Report 6856881-5 (Version None)
Quarter: 2010Q3

REPORT INFORMATION
  Report Type: 
  Country: None (occurrence: None)
  Receive Date: 20100719
  Receipt Date: 20091201
  Transmission Date: 20110219
  Serious: Yes (Other)
  Sender: FDA-Public Use
  Company Number: US-BRISTOL-MYERS SQUIBB COMPANY-14877310

PATIENT
  Age: 73 Year
  Sex: Female
  Weight: 87 kg

DRUGS (12)
  1. ESTRACE [Suspect]
     Indication: OESTROGEN REPLACEMENT THERAPY
     Dates: start: 19800101
  2. PROGESTERONE [Suspect]
     Indication: OESTROGEN REPLACEMENT THERAPY
     Dates: start: 19800101
  3. PRAVACHOL [Concomitant]
  4. VERAPAMIL [Concomitant]
  5. SYNTHROID [Concomitant]
  6. LIBRAX [Concomitant]
     Indication: IRRITABLE BOWEL SYNDROME
  7. ASPIRIN [Concomitant]
     Dosage: 1DF=1/2TABLET
  8. ZOCOR [Concomitant]
     Indication: HYPERCHOLESTEROLAEMIA
     Dosage: 1/2 QD
  9. LANOXIN [Concomitant]
     Dosage: IN 1997
  10. TAMOXIFEN [Concomitant]
  11. PROVERA [Concomitant]
  12. TAGAMET [Concomitant]

REACTIONS (1)
  - BREAST CANCER IN SITU [None]
